FAERS Safety Report 21897252 (Version 1)
Quarter: 2023Q1

REPORT INFORMATION
  Report Type: Spontaneous
  Country: US (occurrence: None)
  Receive Date: 20230121
  Receipt Date: 20230121
  Transmission Date: 20230417
  Serious: No
  Sender: FDA-Public Use
  Company Number: None

PATIENT
  Age: 78 Year
  Sex: Male
  Weight: 67.5 kg

DRUGS (3)
  1. DORZOLAMIDE HYDROCHLORIDE\TIMOLOL MALEATE [Suspect]
     Active Substance: DORZOLAMIDE HYDROCHLORIDE\TIMOLOL MALEATE
     Indication: Glaucoma
     Dosage: OTHER QUANTITY : 1 DROP(S);?FREQUENCY : TWICE A DAY;?
     Route: 047
     Dates: start: 20230118, end: 20230119
  2. multi vitamin B [Concomitant]
  3. Zinc tablet [Concomitant]

REACTIONS (4)
  - Instillation site erythema [None]
  - Instillation site pruritus [None]
  - Vision blurred [None]
  - Periorbital oedema [None]

NARRATIVE: CASE EVENT DATE: 20230118
